FAERS Safety Report 5217494-4 (Version None)
Quarter: 2006Q4

REPORT INFORMATION
  Report Type: 
  Country: None (occurrence: None)
  Receive Date: 20061130
  Receipt Date: 20060705
  Transmission Date: 20070319
  Serious: Yes (Hospitalization)
  Sender: FDA-Public Use
  Company Number: US200603000460

PATIENT
  Age: 46 Year
  Sex: Female
  Weight: 89.3 kg

DRUGS (14)
  1. ZYPREXA [Suspect]
     Indication: DEPRESSION
     Dosage: SEE IMAGE
     Dates: start: 20000101, end: 20010101
  2. ZYPREXA [Suspect]
     Indication: DEPRESSION
     Dosage: SEE IMAGE
     Dates: start: 20010401, end: 20010801
  3. ZYPREXA [Suspect]
     Indication: DEPRESSION
     Dosage: SEE IMAGE
     Dates: start: 20011001, end: 20020201
  4. ZYPREXA [Suspect]
     Indication: DEPRESSION
     Dosage: SEE IMAGE
     Dates: start: 20020201, end: 20020301
  5. ZYPREXA [Suspect]
     Indication: DEPRESSION
     Dosage: SEE IMAGE
     Dates: start: 20020301, end: 20031101
  6. ZYPREXA [Suspect]
     Indication: DEPRESSION
     Dosage: SEE IMAGE
     Dates: start: 20031201, end: 20040901
  7. DIVALPROEX SODIUM [Concomitant]
  8. BUPROPION HYDROCHLORIDE [Concomitant]
  9. MIRTAZAPINE [Concomitant]
  10. EFFEXOR [Concomitant]
  11. METFORMIN HCL [Concomitant]
  12. PREDNISONE TAB [Concomitant]
  13. BISOPROLOL FUMARATE [Concomitant]
  14. HYDROCHLOROTHIAZIDE [Concomitant]

REACTIONS (6)
  - DIABETES MELLITUS [None]
  - HYPERTENSION [None]
  - HYPOGLYCAEMIA [None]
  - OBESITY [None]
  - POLYCYSTIC OVARIES [None]
  - WEIGHT INCREASED [None]
